FAERS Safety Report 9156231 (Version 1)
Quarter: 2013Q1

REPORT INFORMATION
  Report Type: Spontaneous
  Country: US (occurrence: US)
  Receive Date: 20130311
  Receipt Date: 20130311
  Transmission Date: 20140127
  Serious: No
  Sender: FDA-Public Use
  Company Number: US-009507513-1303USA000741

PATIENT
  Age: 65 Year
  Sex: Female

DRUGS (1)
  1. ZIOPTAN [Suspect]
     Dosage: UNK
     Route: 047

REACTIONS (2)
  - Hair growth abnormal [Unknown]
  - Skin discolouration [Unknown]
